FAERS Safety Report 5426914-1 (Version None)
Quarter: 2007Q3

REPORT INFORMATION
  Report Type: 
  Country: None (occurrence: None)
  Receive Date: 20070827
  Receipt Date: 20070815
  Transmission Date: 20080115
  Serious: Yes (Disabling)
  Sender: FDA-Public Use
  Company Number: FI-PFIZER INC-2007069479

PATIENT
  Sex: Female

DRUGS (3)
  1. CABERGOLINE [Suspect]
     Indication: PARKINSON'S DISEASE
     Route: 048
     Dates: start: 20030416, end: 20050410
  2. MADOPAR [Concomitant]
     Route: 048
  3. SELEGILINE HCL [Concomitant]
     Route: 048
     Dates: start: 19961111, end: 20050509

REACTIONS (2)
  - AORTIC VALVE DISEASE [None]
  - AORTIC VALVE INCOMPETENCE [None]
